FAERS Safety Report 11364888 (Version 5)
Quarter: 2015Q4

REPORT INFORMATION
  Report Type: Spontaneous
  Country: US (occurrence: US)
  Receive Date: 20150811
  Receipt Date: 20151020
  Transmission Date: 20160304
  Serious: Yes (Hospitalization)
  Sender: FDA-Public Use
  Company Number: US-UNITED THERAPEUTICS-UNT-2015-009110

PATIENT
  Sex: Female
  Weight: 51.25 kg

DRUGS (7)
  1. ORENITRAM [Suspect]
     Active Substance: TREPROSTINIL
     Indication: PULMONARY HYPERTENSION
     Dosage: 0.125 MG, BID
     Route: 048
     Dates: start: 20150707
  2. ORENITRAM [Suspect]
     Active Substance: TREPROSTINIL
     Dosage: 0.125 MG, TID
     Route: 048
  3. ORENITRAM [Suspect]
     Active Substance: TREPROSTINIL
     Dosage: 0.375 MG, TID
     Route: 048
  4. ADCIRCA [Concomitant]
     Active Substance: TADALAFIL
     Indication: PRODUCT USED FOR UNKNOWN INDICATION
  5. ORENITRAM [Suspect]
     Active Substance: TREPROSTINIL
     Dosage: UNK
  6. ORENITRAM [Suspect]
     Active Substance: TREPROSTINIL
     Dosage: 0.25 MG, BID
     Route: 048
  7. ORENITRAM [Suspect]
     Active Substance: TREPROSTINIL
     Dosage: 0.375 MG, BID
     Route: 048

REACTIONS (12)
  - Pneumonia [Unknown]
  - Dyspnoea [Unknown]
  - Confusional state [Unknown]
  - Pain [Not Recovered/Not Resolved]
  - Oxygen saturation decreased [Unknown]
  - Asthenia [Unknown]
  - Oedema [Unknown]
  - Gastrointestinal disorder [Unknown]
  - Ascites [Unknown]
  - Headache [Not Recovered/Not Resolved]
  - Infection [Unknown]
  - Wound [Unknown]

NARRATIVE: CASE EVENT DATE: 2015
